FAERS Safety Report 9900336 (Version 3)
Quarter: 2015Q1

REPORT INFORMATION
  Report Type: Report from Study
  Country: US (occurrence: US)
  Receive Date: 20140216
  Receipt Date: 20150211
  Transmission Date: 20150721
  Serious: Yes (Death)
  Sender: FDA-Public Use
  Company Number: US-ROCHE-1295781

PATIENT
  Sex: Female
  Weight: 64.92 kg

DRUGS (7)
  1. AVASTIN [Suspect]
     Active Substance: BEVACIZUMAB
     Route: 042
     Dates: start: 20100430
  2. AVASTIN [Suspect]
     Active Substance: BEVACIZUMAB
     Dosage: IN 100 ML NORMAL SALINE
     Route: 042
     Dates: start: 20101028
  3. TARCEVA [Suspect]
     Active Substance: ERLOTINIB HYDROCHLORIDE
     Indication: PRODUCT USED FOR UNKNOWN INDICATION
     Dosage: FOR 28 DAYS CYCLE.
     Route: 048
  4. AVASTIN [Suspect]
     Active Substance: BEVACIZUMAB
     Route: 042
     Dates: start: 20100130
  5. BENADRYL [Concomitant]
     Active Substance: DIPHENHYDRAMINE HYDROCHLORIDE
  6. TARCEVA [Suspect]
     Active Substance: ERLOTINIB HYDROCHLORIDE
     Route: 048
  7. AVASTIN [Suspect]
     Active Substance: BEVACIZUMAB
     Indication: NEOPLASM MALIGNANT
     Dosage: IN 100 ML NORMAL SALINE
     Route: 042
     Dates: start: 20101014

REACTIONS (11)
  - Poor quality sleep [Recovered/Resolved]
  - Disease progression [Unknown]
  - Hypoaesthesia [Unknown]
  - Chest pain [Unknown]
  - Death [Fatal]
  - Blood pressure increased [Unknown]
  - Nausea [Unknown]
  - Weight increased [Unknown]
  - Gastrooesophageal reflux disease [Unknown]
  - Fatigue [Unknown]
  - Headache [Recovered/Resolved]
